FAERS Safety Report 5828218-1 (Version None)
Quarter: 2008Q3

REPORT INFORMATION
  Report Type: 
  Country: None (occurrence: None)
  Receive Date: 20080720
  Receipt Date: 20080716
  Transmission Date: 20090109
  Serious: Yes (Other)
  Sender: FDA-Public Use
  Company Number: PAR_02267_2008

PATIENT
  Age: 17 Year
  Sex: Male
  Weight: 89.8122 kg

DRUGS (4)
  1. PROPRANOLOL HCL [Suspect]
     Indication: AGGRESSION
     Dosage: 80 MG BID ORAL
     Route: 048
     Dates: start: 20080101
  2. PROPRANOLOL HCL [Suspect]
     Indication: ANTICIPATORY ANXIETY
     Dosage: 80 MG BID ORAL
     Route: 048
     Dates: start: 20080101
  3. PROPRANOLOL [Suspect]
     Indication: AGGRESSION
     Dosage: 80 MG BID ORAL
     Route: 048
     Dates: start: 20080101
  4. PROPRANOLOL [Suspect]
     Indication: ANTICIPATORY ANXIETY
     Dosage: 80 MG BID ORAL
     Route: 048
     Dates: start: 20080101

REACTIONS (5)
  - ABNORMAL BEHAVIOUR [None]
  - AGGRESSION [None]
  - AGITATION [None]
  - DISCOMFORT [None]
  - THERAPEUTIC RESPONSE UNEXPECTED WITH DRUG SUBSTITUTION [None]
